FAERS Safety Report 6986504-6 (Version None)
Quarter: 2010Q3

REPORT INFORMATION
  Report Type: 
  Country: None (occurrence: None)
  Receive Date: 20100915
  Receipt Date: 20090707
  Transmission Date: 20110219
  Serious: No
  Sender: FDA-Public Use
  Company Number: US-WYE-H10072209

PATIENT
  Sex: Male

DRUGS (2)
  1. PRISTIQ [Suspect]
     Route: 048
  2. PRISTIQ [Suspect]
     Route: 048
     Dates: start: 20090101

REACTIONS (2)
  - DIZZINESS [None]
  - DRUG WITHDRAWAL SYNDROME [None]
